FAERS Safety Report 9029017 (Version 1)
Quarter: 2013Q1

REPORT INFORMATION
  Report Type: Spontaneous
  Country: CL (occurrence: CL)
  Receive Date: 20130122
  Receipt Date: 20130122
  Transmission Date: 20140127
  Serious: Yes (Disabling)
  Sender: FDA-Public Use
  Company Number: PHHY2012CL113108

PATIENT
  Age: 44 Year
  Sex: Female
  Weight: 50 kg

DRUGS (3)
  1. GILENYA [Suspect]
     Indication: MULTIPLE SCLEROSIS
     Dosage: 0.5 MG, QD
     Route: 048
     Dates: start: 20120829
  2. GILENYA [Suspect]
     Dosage: 0.5 MG, QD
     Route: 048
  3. KOPODEX [Concomitant]
     Indication: EPILEPSY
     Dosage: 500 MG, Q12H
     Route: 048

REACTIONS (1)
  - Urinary incontinence [Recovered/Resolved]
